FAERS Safety Report 9450118 (Version 1)
Quarter: 2013Q3

REPORT INFORMATION
  Report Type: Spontaneous
  Country: FR (occurrence: FR)
  Receive Date: 20130809
  Receipt Date: 20130809
  Transmission Date: 20140515
  Serious: Yes (Hospitalization)
  Sender: FDA-Public Use
  Company Number: FR-PFIZER INC-2013227167

PATIENT
  Age: 46 Year
  Sex: Female

DRUGS (1)
  1. SALAZOPYRINE [Suspect]
     Indication: ARTHRALGIA
     Dosage: UNK
     Route: 048
     Dates: start: 20120417, end: 20120426

REACTIONS (5)
  - Rash [Recovered/Resolved]
  - Hyperthermia [Recovered/Resolved]
  - Face oedema [Recovered/Resolved]
  - Lymphadenopathy [Unknown]
  - Localised oedema [Unknown]
